FAERS Safety Report 18094351 (Version 1)
Quarter: 2020Q3

REPORT INFORMATION
  Report Type: Spontaneous
  Country: US (occurrence: US)
  Receive Date: 20200730
  Receipt Date: 20200730
  Transmission Date: 20201103
  Serious: Yes (Other)
  Sender: FDA-Public Use
  Company Number: US-HIKMA PHARMACEUTICALS USA INC.-US-H14001-20-03425

PATIENT
  Age: 46 Year
  Sex: Male

DRUGS (4)
  1. MIRALAX [Concomitant]
     Active Substance: POLYETHYLENE GLYCOL 3350
     Indication: PRODUCT USED FOR UNKNOWN INDICATION
  2. METAMUCIL [Concomitant]
     Active Substance: PLANTAGO SEED
     Indication: PRODUCT USED FOR UNKNOWN INDICATION
  3. LORAZEPAM. [Suspect]
     Active Substance: LORAZEPAM
     Indication: PANIC ATTACK
  4. LORAZEPAM. [Suspect]
     Active Substance: LORAZEPAM
     Indication: ANXIETY
     Route: 048
     Dates: start: 2020

REACTIONS (4)
  - Disturbance in attention [Unknown]
  - Communication disorder [Unknown]
  - Muscle spasms [Unknown]
  - Memory impairment [Unknown]
